FAERS Safety Report 13700886 (Version 4)
Quarter: 2018Q1

REPORT INFORMATION
  Report Type: Spontaneous
  Country: AR (occurrence: AR)
  Receive Date: 20170629
  Receipt Date: 20180303
  Transmission Date: 20180508
  Serious: Yes (Other)
  Sender: FDA-Public Use
  Company Number: AR-AMGEN-ARGSP2017097905

PATIENT
  Age: 62 Year
  Sex: Female

DRUGS (1)
  1. ENBREL [Suspect]
     Active Substance: ETANERCEPT
     Indication: RHEUMATOID ARTHRITIS
     Dosage: 50 MG, WEEKLY
     Route: 065
     Dates: start: 20160719

REACTIONS (9)
  - Tooth fracture [Recovered/Resolved]
  - Diabetes mellitus [Recovered/Resolved]
  - Bone deformity [Recovering/Resolving]
  - Influenza [Recovered/Resolved]
  - Foot deformity [Recovering/Resolving]
  - Infection [Recovered/Resolved]
  - Procedural haemorrhage [Recovered/Resolved]
  - General symptom [Recovering/Resolving]
  - Pain [Recovered/Resolved]

NARRATIVE: CASE EVENT DATE: 201705
